FAERS Safety Report 4295030-7 (Version None)
Quarter: 2004Q1

REPORT INFORMATION
  Report Type: 
  Country: None (occurrence: None)
  Receive Date: 20040212
  Receipt Date: 20040212
  Transmission Date: 20041129
  Serious: Yes (Death)
  Sender: FDA-Public Use
  Company Number: None

PATIENT
  Age: 57 Year
  Sex: Male

DRUGS (16)
  1. PROPULSID [Suspect]
     Indication: DIABETIC GASTROPARESIS
     Dosage: 20 MG QID
     Dates: start: 20010420
  2. REGLAN [Concomitant]
  3. NEURONTIN [Concomitant]
  4. PRILOSEC [Concomitant]
  5. PROZAC [Concomitant]
  6. DILANTIN [Concomitant]
  7. FLOMAX [Concomitant]
  8. SYNTHROID [Concomitant]
  9. ZOCOR [Concomitant]
  10. COUMADIN [Concomitant]
  11. CAPOTEN [Concomitant]
  12. IMDUR [Concomitant]
  13. AMBIEN [Concomitant]
  14. VIOXX [Concomitant]
  15. HYDROCODONE [Concomitant]
  16. INSULIN [Concomitant]

REACTIONS (1)
  - UNEVALUABLE EVENT [None]
